FAERS Safety Report 4408618-7 (Version None)
Quarter: 2004Q3

REPORT INFORMATION
  Report Type: 
  Country: None (occurrence: None)
  Receive Date: 20040723
  Receipt Date: 20040713
  Transmission Date: 20050211
  Serious: Yes (Other)
  Sender: FDA-Public Use
  Company Number: L04-GER-03050-01

PATIENT
  Age: 70 Year
  Sex: Female

DRUGS (3)
  1. CITALOPRAM [Suspect]
     Indication: DEPRESSION
     Dosage: 10 MG QD PO
     Route: 048
  2. TRAMADOL HCL [Suspect]
     Indication: ANALGESIC EFFECT
     Dosage: 50 MG
  3. TRAMADOL HCL [Suspect]
     Dosage: 20 MG QD PO
     Route: 048

REACTIONS (4)
  - DRUG INTERACTION [None]
  - HALLUCINATION, VISUAL [None]
  - PAIN [None]
  - SEROTONIN SYNDROME [None]
